FAERS Safety Report 5752460-1 (Version None)
Quarter: 2008Q2

REPORT INFORMATION
  Report Type: 
  Country: None (occurrence: None)
  Receive Date: 20080527
  Receipt Date: 20080527
  Transmission Date: 20081010
  Serious: No
  Sender: FDA-Public Use
  Company Number: None

PATIENT

DRUGS (1)
  1. DIGITEK [Suspect]

REACTIONS (4)
  - DIARRHOEA [None]
  - GASTRIC ULCER [None]
  - HYPOTENSION [None]
  - VISION BLURRED [None]
